FAERS Safety Report 15739851 (Version 1)
Quarter: 2018Q4

REPORT INFORMATION
  Report Type: Report from Study
  Country: ES (occurrence: ES)
  Receive Date: 20181219
  Receipt Date: 20181219
  Transmission Date: 20190205
  Serious: Yes (Hospitalization)
  Sender: FDA-Public Use
  Company Number: ES-SA-2018SA341236

PATIENT
  Age: 56 Year
  Sex: Male
  Weight: 66.7 kg

DRUGS (2)
  1. INSULIN GLARGINE [Suspect]
     Active Substance: INSULIN GLARGINE
     Indication: TYPE 2 DIABETES MELLITUS
     Dosage: 32 IU, QD
     Route: 058
  2. METFORMIN [Concomitant]
     Active Substance: METFORMIN HYDROCHLORIDE
     Indication: TYPE 2 DIABETES MELLITUS
     Dosage: UNK UNK, UNK/ AS PER REGIMEN
     Route: 048

REACTIONS (2)
  - Abdominal pain upper [Recovering/Resolving]
  - Aortic disorder [Recovering/Resolving]

NARRATIVE: CASE EVENT DATE: 20181206
